FAERS Safety Report 24201874 (Version 1)
Quarter: 2024Q3

REPORT INFORMATION
  Report Type: Spontaneous
  Country: US (occurrence: US)
  Receive Date: 20240812
  Receipt Date: 20240812
  Transmission Date: 20241017
  Serious: No
  Sender: JOURNEY MEDICAL CORPORATION
  Company Number: US-JOURNEY MEDICAL CORPORATION-2023JNY00243

PATIENT
  Age: 20 Year
  Sex: Male
  Weight: 74.83 kg

DRUGS (1)
  1. QBREXZA [Suspect]
     Active Substance: GLYCOPYRRONIUM TOSYLATE
     Indication: Hyperhidrosis
     Dosage: 1 DOSAGE FORM, 1X/DAY
     Route: 061
     Dates: start: 20231008, end: 20231021

REACTIONS (7)
  - Ciliary muscle spasm [Not Recovered/Not Resolved]
  - Aniridia [Not Recovered/Not Resolved]
  - Presbyopia [Not Recovered/Not Resolved]
  - Vision blurred [Not Recovered/Not Resolved]
  - Headache [Not Recovered/Not Resolved]
  - Mydriasis [Not Recovered/Not Resolved]
  - Off label use [Recovered/Resolved]

NARRATIVE: CASE EVENT DATE: 20231008
